FAERS Safety Report 5875536-7 (Version None)
Quarter: 2008Q3

REPORT INFORMATION
  Report Type: 
  Country: None (occurrence: None)
  Receive Date: 20080909
  Receipt Date: 20080211
  Transmission Date: 20090109
  Serious: No
  Sender: FDA-Public Use
  Company Number: TR-ELI_LILLY_AND_COMPANY-TR200808006276

PATIENT
  Age: 79 Year
  Sex: Male

DRUGS (3)
  1. ZYPREXA [Suspect]
     Indication: MAJOR DEPRESSION
     Dosage: 5 MG, DAILY (1/D)
     Route: 065
  2. ZYPREXA [Suspect]
     Dosage: 10 MG, DAILY (1/D)
     Route: 065
  3. SERTRALIN [Concomitant]
     Indication: MAJOR DEPRESSION
     Dosage: 50 MG, DAILY (1/D)
     Route: 065

REACTIONS (1)
  - NEUTROPENIA [None]
